FAERS Safety Report 8415676-1 (Version None)
Quarter: 2012Q2

REPORT INFORMATION
  Report Type: 
  Country: None (occurrence: None)
  Receive Date: 20120530
  Receipt Date: 20120517
  Transmission Date: 20120825
  Serious: Yes (Other)
  Sender: FDA-Public Use
  Company Number: JPI-P-021539

PATIENT
  Age: 61 Year
  Sex: Male
  Weight: 86.637 kg

DRUGS (7)
  1. METFORMIN HCL [Concomitant]
  2. GABAPENTIN [Concomitant]
  3. PANTOPRAZOLE SODIUM [Concomitant]
  4. CLOPIDOGREL BISULFATE [Concomitant]
  5. XYREM [Suspect]
     Indication: INSOMNIA
     Dosage: 6 GM (3 GM, 2 IN 1 D), ORAL (UNKNOWN), ORAL (6 GM FIRST DOSE/3 GM SECOND DOSE), ORAL
     Route: 048
     Dates: start: 20040503
  6. XYREM [Suspect]
     Indication: INSOMNIA
     Dosage: 6 GM (3 GM, 2 IN 1 D), ORAL (UNKNOWN), ORAL (6 GM FIRST DOSE/3 GM SECOND DOSE), ORAL
     Route: 048
     Dates: start: 20090730
  7. ASPIRIN [Concomitant]

REACTIONS (3)
  - CORONARY ARTERY OCCLUSION [None]
  - DRY MOUTH [None]
  - ATRIAL FIBRILLATION [None]
